FAERS Safety Report 22052691 (Version 2)
Quarter: 2023Q2

REPORT INFORMATION
  Report Type: Report from Study
  Country: US (occurrence: None)
  Receive Date: 20230302
  Receipt Date: 20230419
  Transmission Date: 20230721
  Serious: Yes (Hospitalization, Other)
  Sender: FDA-Public Use
  Company Number: US-Merck Healthcare KGaA-9385819

PATIENT
  Age: 70 Year
  Sex: Female

DRUGS (1)
  1. REBIF [Suspect]
     Active Substance: INTERFERON BETA-1A
     Indication: Product used for unknown indication
     Dates: start: 2008

REACTIONS (9)
  - Cardiac ablation [Unknown]
  - Vascular pseudoaneurysm [Unknown]
  - Nervous system disorder [Unknown]
  - Swelling [Unknown]
  - Contusion [Unknown]
  - Pain in extremity [Not Recovered/Not Resolved]
  - Asthenia [Unknown]
  - Depression [Unknown]
  - Product administration interrupted [Unknown]

NARRATIVE: CASE EVENT DATE: 20221201
